FAERS Safety Report 4463228-0 (Version None)
Quarter: 2004Q3

REPORT INFORMATION
  Report Type: 
  Country: None (occurrence: None)
  Receive Date: 20040930
  Receipt Date: 20040927
  Transmission Date: 20050211
  Serious: Yes (Other)
  Sender: FDA-Public Use
  Company Number: PHBS2004TW12878

PATIENT
  Age: 73 Year
  Sex: Female

DRUGS (3)
  1. EXELON [Suspect]
     Indication: DEMENTIA
     Dosage: 6 MG/D
     Route: 048
     Dates: start: 20021216, end: 20030223
  2. EXELON [Suspect]
     Dosage: 9 MG/D
     Route: 048
     Dates: start: 20030224
  3. OLANZAPINE [Suspect]
     Indication: DEMENTIA
     Route: 065

REACTIONS (2)
  - DYSTONIA [None]
  - EXTRAPYRAMIDAL DISORDER [None]
